FAERS Safety Report 22793830 (Version 2)
Quarter: 2023Q4

REPORT INFORMATION
  Report Type: Spontaneous
  Country: GB (occurrence: GB)
  Receive Date: 20230807
  Receipt Date: 20231211
  Transmission Date: 20240110
  Serious: Yes (Death, Hospitalization, Other)
  Sender: FDA-Public Use
  Company Number: None

PATIENT
  Age: 80 Year
  Sex: Male

DRUGS (1)
  1. RISPERIDONE [Suspect]
     Active Substance: RISPERIDONE
     Indication: Product used for unknown indication
     Dosage: OVERDOSE. PRESCRIBED DOSE- 0.25 MILLIGRAMS IN THE MORNING AND 1 MILLIGRAM AT NIGHT.
     Route: 065
     Dates: start: 20190619

REACTIONS (8)
  - Somnolence [Fatal]
  - Vomiting [Fatal]
  - Device use confusion [Fatal]
  - Accidental overdose [Fatal]
  - Pneumonia aspiration [Fatal]
  - Sepsis [Fatal]
  - Dysphagia [Fatal]
  - Condition aggravated [Fatal]
